FAERS Safety Report 13560460 (Version 1)
Quarter: 2017Q2

REPORT INFORMATION
  Report Type: Report from Study
  Country: JP (occurrence: JP)
  Receive Date: 20170518
  Receipt Date: 20170518
  Transmission Date: 20170830
  Serious: Yes (Hospitalization, Other)
  Sender: FDA-Public Use
  Company Number: JP-ELI_LILLY_AND_COMPANY-JP201705004953

PATIENT
  Age: 62 Year
  Sex: Female
  Weight: 43.5 kg

DRUGS (4)
  1. PACLITAXEL. [Concomitant]
     Active Substance: PACLITAXEL
     Dosage: 80 MG, OTHER
     Route: 042
     Dates: start: 20161208, end: 20161208
  2. RAMUCIRUMAB [Suspect]
     Active Substance: RAMUCIRUMAB
     Indication: GASTRIC CANCER STAGE IV
     Dosage: 340 MG, OTHER
     Route: 042
     Dates: start: 20161110, end: 20170330
  3. PACLITAXEL. [Concomitant]
     Active Substance: PACLITAXEL
     Dosage: 65 MG, OTHER
     Route: 042
     Dates: start: 20170105, end: 20170330
  4. PACLITAXEL. [Concomitant]
     Active Substance: PACLITAXEL
     Indication: GASTRIC CANCER STAGE IV
     Dosage: 100 MG, OTHER
     Route: 042
     Dates: start: 20161110, end: 20161110

REACTIONS (4)
  - Neutrophil count decreased [Recovered/Resolved]
  - Ascites [Recovered/Resolved]
  - Gastric perforation [Recovered/Resolved]
  - Febrile neutropenia [Recovered/Resolved]

NARRATIVE: CASE EVENT DATE: 20161117
